FAERS Safety Report 9446046 (Version 3)
Quarter: 2013Q3

REPORT INFORMATION
  Report Type: Report from Study
  Country: US (occurrence: US)
  Receive Date: 20130807
  Receipt Date: 20130827
  Transmission Date: 20140515
  Serious: Yes (Hospitalization, Other)
  Sender: FDA-Public Use
  Company Number: US-ROCHE-1237246

PATIENT
  Age: 58 Year
  Sex: Female
  Weight: 70.82 kg

DRUGS (3)
  1. ERIVEDGE [Suspect]
     Indication: BASAL CELL CARCINOMA
     Route: 048
     Dates: start: 20130531, end: 20130628
  2. PREMARIN [Concomitant]
     Indication: HORMONE REPLACEMENT THERAPY
     Route: 048
  3. ADVAIR [Concomitant]
     Indication: ASTHMA

REACTIONS (9)
  - Pruritus [Recovering/Resolving]
  - Yellow skin [Recovering/Resolving]
  - Diarrhoea [Recovering/Resolving]
  - Chromaturia [Recovering/Resolving]
  - Nausea [Recovering/Resolving]
  - Vomiting [Recovering/Resolving]
  - Muscle spasms [Recovered/Resolved]
  - Hepatitis [Recovering/Resolving]
  - Jaundice [Recovering/Resolving]
